FAERS Safety Report 10038227 (Version 1)
Quarter: 2014Q1

REPORT INFORMATION
  Report Type: Spontaneous
  Country: US (occurrence: None)
  Receive Date: 20140306
  Receipt Date: 20140306
  Transmission Date: 20141002
  Serious: Yes (Hospitalization, Other)
  Sender: FDA-Public Use
  Company Number: 163-21880-13073440

PATIENT
  Age: 62 Year
  Sex: Female

DRUGS (8)
  1. REVLIMID [Suspect]
     Indication: PLASMA CELL MYELOMA
     Route: 048
     Dates: start: 201107
  2. XANAX(ALPRAZOLAM)(TABLETS) [Concomitant]
  3. PAROXETINE HCL (PAROXETINE HYDROCHLORIDE) (TABLETS) [Concomitant]
  4. VERAPMAIL(VERPAMIL)(TABLETS) [Concomitant]
  5. OXYCODONE/APAP(OXYCODONE/APAP) [Concomitant]
  6. BABY ASPIRIN(ACETYLSALICYLIC ACID)(ENTERIC-COATED TABLET) [Concomitant]
  7. VITAMIN B-100 COMPLEX (B-KOMPLEX ^LECIVA^) (TABLETS) [Concomitant]
  8. VITAMIN D (ERGOCALCIFEROL) [Concomitant]

REACTIONS (2)
  - Pelvic fracture [None]
  - Thrombosis [None]
